FAERS Safety Report 7245808-2 (Version None)
Quarter: 2011Q1

REPORT INFORMATION
  Report Type: 
  Country: None (occurrence: None)
  Receive Date: 20110126
  Receipt Date: 20110119
  Transmission Date: 20110831
  Serious: Yes (Hospitalization)
  Sender: FDA-Public Use
  Company Number: JP-CEPHALON-2011000317

PATIENT
  Age: 42 Year
  Sex: Male

DRUGS (9)
  1. FAMOTIDINE [Concomitant]
  2. PALONOSETRON HYDROCHLORIDE [Concomitant]
     Dates: start: 20110104, end: 20110104
  3. DEXAMETHASONE SODIUM PHOSPHATE [Concomitant]
     Dates: start: 20110104, end: 20110105
  4. PREDNISOLONE SOLUTION [Concomitant]
     Dates: start: 20110108, end: 20110108
  5. PREDNISOLONE [Concomitant]
     Dates: start: 20110112
  6. ACETAMINOPHEN [Concomitant]
     Dates: start: 20110108, end: 20110108
  7. BENDAMUSTINE HCL [Suspect]
     Indication: B-CELL LYMPHOMA
     Route: 042
     Dates: start: 20110104
  8. PREDNISOLONE [Concomitant]
     Dates: start: 20110105, end: 20110112
  9. FLUCONAZOLE [Concomitant]
     Dates: start: 20110115

REACTIONS (7)
  - PYREXIA [None]
  - PALPITATIONS [None]
  - ANGIOPATHY [None]
  - GASTROENTERITIS [None]
  - HERPES VIRUS INFECTION [None]
  - DYSPNOEA [None]
  - PNEUMONIA [None]
